FAERS Safety Report 17769460 (Version 6)
Quarter: 2021Q1

REPORT INFORMATION
  Report Type: Spontaneous
  Country: US (occurrence: US)
  Receive Date: 20200512
  Receipt Date: 20210125
  Transmission Date: 20210419
  Serious: No
  Sender: FDA-Public Use
  Company Number: US-GLAXOSMITHKLINE-US2020AMR079335

PATIENT
  Sex: Female

DRUGS (7)
  1. ZEJULA [Suspect]
     Active Substance: NIRAPARIB
     Indication: MALIGNANT PERITONEAL NEOPLASM
     Dosage: 200 MG, QD
     Dates: start: 20181027
  2. ZEJULA [Suspect]
     Active Substance: NIRAPARIB
     Dosage: 200 MG, QD
     Dates: start: 20200828
  3. ZEJULA [Suspect]
     Active Substance: NIRAPARIB
     Dosage: 200 MG, QD
     Dates: start: 2020
  4. ZEJULA [Suspect]
     Active Substance: NIRAPARIB
     Dosage: 200 MG, QD
     Dates: start: 20200828
  5. ALPRAZOLAM. [Concomitant]
     Active Substance: ALPRAZOLAM
     Indication: PRODUCT USED FOR UNKNOWN INDICATION
     Dosage: UNK
  6. ZEJULA [Suspect]
     Active Substance: NIRAPARIB
     Indication: MALIGNANT NEOPLASM OF UTERINE ADNEXA
     Dosage: 200 MG, QD
     Dates: start: 20200827
  7. ZEJULA [Suspect]
     Active Substance: NIRAPARIB
     Indication: OVARIAN CANCER
     Dosage: 200 MG, QD
     Dates: start: 2018, end: 20200827

REACTIONS (9)
  - Adverse drug reaction [Unknown]
  - Stress [Unknown]
  - Knee arthroplasty [Unknown]
  - Product use in unapproved indication [Unknown]
  - Off label use [Unknown]
  - Arthralgia [Recovered/Resolved]
  - Blood potassium decreased [Unknown]
  - Carbohydrate antigen 125 increased [Unknown]
  - Nausea [Unknown]
